FAERS Safety Report 8249808-5 (Version None)
Quarter: 2012Q2

REPORT INFORMATION
  Report Type: 
  Country: None (occurrence: None)
  Receive Date: 20120402
  Receipt Date: 20120327
  Transmission Date: 20120825
  Serious: No
  Sender: FDA-Public Use
  Company Number: PHEH2012US005436

PATIENT
  Sex: Female
  Weight: 78.458 kg

DRUGS (9)
  1. ZOLOFT [Concomitant]
  2. VITAMIN B-12 [Concomitant]
  3. BACLOFEN [Concomitant]
  4. VITAMIN D [Concomitant]
  5. XANAX [Concomitant]
  6. OXYBUTYNIN [Concomitant]
  7. GILENYA [Suspect]
     Indication: MULTIPLE SCLEROSIS
     Dosage: 0.5 MG, QD
     Route: 048
     Dates: start: 20110222, end: 20120201
  8. FAMPRIDINE [Concomitant]
  9. LORAZEPAM [Concomitant]

REACTIONS (5)
  - MULTIPLE SCLEROSIS RELAPSE [None]
  - ASTHENIA [None]
  - HEART RATE IRREGULAR [None]
  - DIZZINESS [None]
  - BLOOD PRESSURE INCREASED [None]
